FAERS Safety Report 5290724-9 (Version None)
Quarter: 2007Q2

REPORT INFORMATION
  Report Type: 
  Country: None (occurrence: None)
  Receive Date: 20070409
  Receipt Date: 20070328
  Transmission Date: 20071010
  Serious: Yes (Other)
  Sender: FDA-Public Use
  Company Number: PHBS2007JP05648

PATIENT
  Age: 27 Year
  Sex: Female

DRUGS (1)
  1. GLEEVEC [Suspect]
     Indication: CHRONIC MYELOID LEUKAEMIA

REACTIONS (5)
  - GRAFT VERSUS HOST DISEASE [None]
  - LEUKOPENIA [None]
  - LIVER DISORDER [None]
  - NAUSEA [None]
  - VOMITING [None]
